FAERS Safety Report 6389487-5 (Version None)
Quarter: 2009Q4

REPORT INFORMATION
  Report Type: 
  Country: None (occurrence: None)
  Receive Date: 20091003
  Receipt Date: 20090929
  Transmission Date: 20100525
  Serious: Yes (Other)
  Sender: FDA-Public Use
  Company Number: S08-USA-00435-01

PATIENT
  Age: 78 Year
  Sex: Female

DRUGS (5)
  1. THYROID TAB [Suspect]
     Indication: HYPOTHYROIDISM
     Dosage: 180 MG (180 MG, 1 IN 1 D),ORAL
     Route: 048
     Dates: start: 19700101, end: 20060101
  2. THYROID TAB [Suspect]
     Indication: HYPOTHYROIDISM
     Dosage: 120 MG (120 MG, EVERY OTHER DAY), ORAL; 180 MG (180 MG, EVERY OTHER DAY), ORAL
     Route: 048
     Dates: start: 20060101
  3. THYROID TAB [Suspect]
     Indication: HYPOTHYROIDISM
     Dosage: 120 MG (120 MG, EVERY OTHER DAY), ORAL; 180 MG (180 MG, EVERY OTHER DAY), ORAL
     Route: 048
     Dates: start: 20060101
  4. NORVASC [Concomitant]
  5. COUMADIN [Concomitant]

REACTIONS (9)
  - CEREBROVASCULAR ACCIDENT [None]
  - FATIGUE [None]
  - HAIR GROWTH ABNORMAL [None]
  - HOT FLUSH [None]
  - HYPERTENSION [None]
  - JOINT SWELLING [None]
  - OEDEMA PERIPHERAL [None]
  - PERIPHERAL COLDNESS [None]
  - RENAL CANCER STAGE I [None]
